FAERS Safety Report 4810880-3 (Version None)
Quarter: 2005Q4

REPORT INFORMATION
  Report Type: 
  Country: None (occurrence: None)
  Receive Date: 20051027
  Receipt Date: 20051020
  Transmission Date: 20060501
  Serious: Yes (Death, Other)
  Sender: FDA-Public Use
  Company Number: NG-BOEHRINGER INGELHEIM PHARMACEUTICALS, INC.-2005-DE-04360GD

PATIENT

DRUGS (3)
  1. NEVIRAPINE [Suspect]
     Indication: HIV INFECTION
     Dosage: 200 MG DAILY FOR 2 WEEKS, AFTERWARDS DOSAGE INCREASE TO TWICE DAILY
     Route: 048
  2. LAMIVUDINE [Suspect]
     Indication: HIV INFECTION
     Route: 048
  3. STAVUDINE [Suspect]
     Indication: HIV INFECTION
     Route: 048

REACTIONS (4)
  - ANAEMIA [None]
  - CARDIAC FAILURE [None]
  - PULMONARY TUBERCULOSIS [None]
  - SEPTIC SHOCK [None]
